FAERS Safety Report 8784829 (Version 1)
Quarter: 2012Q4

REPORT INFORMATION
  Report Type: Spontaneous
  Country: US (occurrence: None)
  Receive Date: 20120907
  Receipt Date: 20120907
  Transmission Date: 20130627
  Serious: Yes (Other)
  Sender: FDA-Public Use
  Company Number: None

PATIENT
  Age: 71 Year
  Sex: Male
  Weight: 67.1 kg

DRUGS (2)
  1. VESICARE [Suspect]
     Indication: OVERACTIVE BLADDER
     Route: 048
     Dates: start: 20120502, end: 20120617
  2. VESICARE [Suspect]
     Dosage: dURATION- 2 WEEKS AND 2 DAYS
     Dates: start: 20120618, end: 20120704

REACTIONS (12)
  - Diarrhoea [None]
  - Dry mouth [None]
  - Vision blurred [None]
  - Dry eye [None]
  - Dyspepsia [None]
  - Dizziness [None]
  - Anxiety [None]
  - Depression [None]
  - Amnesia [None]
  - Confusional state [None]
  - Cough [None]
  - Abdominal discomfort [None]
